FAERS Safety Report 18565661 (Version 1)
Quarter: 2020Q4

REPORT INFORMATION
  Report Type: Spontaneous
  Country: DE (occurrence: DE)
  Receive Date: 20201201
  Receipt Date: 20201201
  Transmission Date: 20210114
  Serious: Yes (Hospitalization)
  Sender: FDA-Public Use
  Company Number: NVSC2020DE314128

PATIENT
  Age: 7 Year
  Sex: Female
  Weight: 34 kg

DRUGS (7)
  1. OMEP [Suspect]
     Active Substance: OMEPRAZOLE
     Indication: PROPHYLAXIS AGAINST GASTROINTESTINAL ULCER
     Dosage: 1 DF, QD (DAILY DOSE: 1 DF DOSAGE FORM EVERY DAYS) (TABLET)
     Route: 048
  2. URO-TABLINEN [Suspect]
     Active Substance: NITROFURANTOIN
     Indication: URINARY TRACT INFECTION
     Dosage: 1 DF, QD (DAILY DOSE: 1 DF DOSAGE FORM EVERY DAYS)
     Route: 048
  3. PROCYSBI [Suspect]
     Active Substance: CYSTEAMINE BITARTRATE
     Indication: CYSTINOSIS
     Dosage: 10 DF, QD (DAILY DOSE: 10 DF DOSAGE FORM EVERY DAYS 2 SEPARATED DOSES)
     Route: 048
  4. BICANORM [Suspect]
     Active Substance: SODIUM BICARBONATE
     Indication: FANCONI SYNDROME ACQUIRED
     Dosage: 3 DF, QD (DAILY DOSE: 3 DF DOSAGE FORM EVERY DAYS 3 SEPARATED DOSES)
     Route: 048
  5. CYSTADROPS [Suspect]
     Active Substance: CYSTEAMINE HYDROCHLORIDE
     Indication: CYSTINOSIS
     Dosage: 5XTGL.
     Route: 047
  6. VIGANTOLETTEN [Suspect]
     Active Substance: CHOLECALCIFEROL
     Indication: PROPHYLAXIS
     Dosage: 1 DF, QD (DAILY DOSE: 1 DF DOSAGE FORM EVERY DAYS)
     Route: 048
  7. REDUCTO-SPEZIAL [Suspect]
     Active Substance: POTASSIUM PHOSPHATE, MONOBASIC\SODIUM PHOSPHATE, DIBASIC, ANHYDROUS
     Indication: FANCONI SYNDROME ACQUIRED
     Dosage: 2 DF, QD (DAILY DOSE: 2 DF DOSAGE FORM EVERY DAYS 2 SEPARATED DOSES)
     Route: 048

REACTIONS (2)
  - Product administration error [Unknown]
  - Vomiting [Unknown]

NARRATIVE: CASE EVENT DATE: 20190807
